FAERS Safety Report 25690847 (Version 1)
Quarter: 2025Q3

REPORT INFORMATION
  Report Type: Spontaneous
  Country: EU (occurrence: EU)
  Receive Date: 20250818
  Receipt Date: 20250818
  Transmission Date: 20251021
  Serious: Yes (Hospitalization)
  Sender: PFIZER
  Company Number: None

PATIENT
  Age: 61 Year
  Sex: Female
  Weight: 90 kg

DRUGS (6)
  1. DOXORUBICIN HYDROCHLORIDE [Suspect]
     Active Substance: DOXORUBICIN HYDROCHLORIDE
     Indication: Sarcoma
     Route: 042
     Dates: start: 20250430, end: 20250430
  2. IFOSFAMIDE [Suspect]
     Active Substance: IFOSFAMIDE
     Indication: Sarcoma
     Route: 042
     Dates: start: 20250501, end: 20250501
  3. CISPLATIN [Suspect]
     Active Substance: CISPLATIN
     Indication: Sarcoma
     Route: 042
     Dates: start: 20250430, end: 20250430
  4. ONDANSETRON [Suspect]
     Active Substance: ONDANSETRON
     Indication: Prophylaxis of nausea and vomiting
     Dosage: 8 MG, 1X/DAY
     Route: 042
     Dates: start: 20250430, end: 20250501
  5. DEXAMETHASONE [Suspect]
     Active Substance: DEXAMETHASONE
     Indication: Prophylaxis of nausea and vomiting
     Dosage: 12 MG, 1X/DAY
     Route: 042
     Dates: start: 20250430, end: 20250501
  6. MESNA [Suspect]
     Active Substance: MESNA
     Indication: Chemotherapy urothelial toxicity attenuation
     Route: 042
     Dates: start: 20250501, end: 20250501

REACTIONS (1)
  - Encephalopathy [Recovered/Resolved]

NARRATIVE: CASE EVENT DATE: 20250502
